FAERS Safety Report 16141700 (Version 1)
Quarter: 2019Q2

REPORT INFORMATION
  Report Type: Spontaneous
  Country: US (occurrence: US)
  Receive Date: 20190331
  Receipt Date: 20190331
  Transmission Date: 20190711
  Serious: Yes (Other)
  Sender: FDA-Public Use
  Company Number: None

PATIENT
  Age: 54 Year
  Sex: Male
  Weight: 108.9 kg

DRUGS (5)
  1. SEROQUEL [Concomitant]
     Active Substance: QUETIAPINE FUMARATE
  2. PAROXETINE HCL [Concomitant]
     Active Substance: PAROXETINE HYDROCHLORIDE
  3. FLUPHENAZINE HCL [Suspect]
     Active Substance: FLUPHENAZINE HYDROCHLORIDE
     Indication: DEPRESSION
     Dosage: ?          QUANTITY:1 TABLET(S);?
     Route: 048
     Dates: start: 20180323, end: 20190314
  4. FLUPHENAZINE HCL [Suspect]
     Active Substance: FLUPHENAZINE HYDROCHLORIDE
     Indication: SCHIZOPHRENIA
     Dosage: ?          QUANTITY:1 TABLET(S);?
     Route: 048
     Dates: start: 20180323, end: 20190314
  5. TRIHEXYPHENIDYL HCL [Concomitant]
     Active Substance: TRIHEXYPHENIDYL HYDROCHLORIDE

REACTIONS (6)
  - Dry mouth [None]
  - Tooth extraction [None]
  - Weight increased [None]
  - Gynaecomastia [None]
  - Tooth fracture [None]
  - Lethargy [None]

NARRATIVE: CASE EVENT DATE: 20190111
